FAERS Safety Report 17493196 (Version 2)
Quarter: 2020Q1

REPORT INFORMATION
  Report Type: Report from Study
  Country: JP (occurrence: JP)
  Receive Date: 20200304
  Receipt Date: 20200318
  Transmission Date: 20200409
  Serious: Yes (Life-Threatening, Hospitalization, Other)
  Sender: FDA-Public Use
  Company Number: JP-AUROBINDO-AUR-APL-2020-011225

PATIENT
  Age: 61 Year
  Sex: Male
  Weight: 61.7 kg

DRUGS (47)
  1. FOLOTYN [Suspect]
     Active Substance: PRALATREXATE
     Dosage: 30 MILLIEQUIVALENT PER SQUARE METRE, DAILY
     Route: 042
     Dates: end: 20191230
  2. CYANOCOBALAMIN. [Concomitant]
     Active Substance: CYANOCOBALAMIN
     Indication: PROPHYLAXIS
     Dosage: 1 MILLIGRAM
     Route: 042
     Dates: start: 20191216
  3. MINOCYCLINE HYDROCHLORIDE. [Concomitant]
     Active Substance: MINOCYCLINE HYDROCHLORIDE
     Dosage: 100 MILLIGRAM, ONCE A DAY
     Route: 042
     Dates: start: 20200124, end: 20200124
  4. FOLOTYN [Suspect]
     Active Substance: PRALATREXATE
     Dosage: 30 MILLIEQUIVALENT PER SQUARE METRE, DAILY
     Route: 042
     Dates: end: 20200114
  5. LEUCOVORIN. [Suspect]
     Active Substance: LEUCOVORIN
     Indication: PRODUCT USED FOR UNKNOWN INDICATION
     Dosage: 10 DOSAGE FORM
     Route: 048
     Dates: start: 20191224, end: 20191224
  6. CEFAZOLIN SODIUM. [Concomitant]
     Active Substance: CEFAZOLIN SODIUM
     Indication: INFECTION PROPHYLAXIS
     Dosage: 2 GRAM, ONCE A DAY
     Route: 042
     Dates: start: 20200101, end: 20200101
  7. MEROPENEM. [Concomitant]
     Active Substance: MEROPENEM
     Dosage: 0.5 GRAM, ONCE A DAY
     Route: 042
     Dates: start: 20200129, end: 20200129
  8. VANCOMYCIN HYDROCHLORIDE. [Concomitant]
     Active Substance: VANCOMYCIN HYDROCHLORIDE
     Dosage: 0.5 GRAM, ONCE A DAY
     Route: 042
     Dates: start: 20200129, end: 20200129
  9. FOLOTYN [Suspect]
     Active Substance: PRALATREXATE
     Dosage: 30 MILLIEQUIVALENT PER SQUARE METRE, DAILY
     Route: 042
     Dates: start: 20200107, end: 20200107
  10. GRACEVIT [Concomitant]
     Active Substance: SITAFLOXACIN
     Indication: INFECTION PROPHYLAXIS
     Dosage: 100 MILLIGRAM, ONCE A DAY
     Route: 048
     Dates: start: 20200101, end: 20200103
  11. POLYGLOBIN [Concomitant]
     Active Substance: HUMAN IMMUNOGLOBULIN G
     Indication: INFECTION PROPHYLAXIS
     Dosage: 5 GRAM, AS NEEDED
     Route: 042
     Dates: start: 20200101
  12. MEROPENEM. [Concomitant]
     Active Substance: MEROPENEM
     Indication: INFECTION PROPHYLAXIS
     Dosage: 1 GRAM, ONCE A DAY
     Route: 042
     Dates: start: 20200127, end: 20200127
  13. MEROPENEM. [Concomitant]
     Active Substance: MEROPENEM
     Dosage: 1.5 GRAM, ONCE A DAY
     Route: 042
     Dates: start: 20200128, end: 20200128
  14. PLASMA [Concomitant]
     Active Substance: HUMAN PLASMA
     Indication: PRODUCT USED FOR UNKNOWN INDICATION
     Dosage: UNK
     Dates: start: 20200118, end: 20200118
  15. LEUCOVORIN. [Suspect]
     Active Substance: LEUCOVORIN
     Dosage: 5 DOSAGE FORM
     Route: 048
     Dates: start: 20191226, end: 20191226
  16. LANSOPRAZOLE. [Concomitant]
     Active Substance: LANSOPRAZOLE
     Indication: PROPHYLAXIS
     Dosage: 15 MILLIGRAM, ONCE A DAY
     Route: 048
  17. LANSOPRAZOLE. [Concomitant]
     Active Substance: LANSOPRAZOLE
     Indication: GASTRITIS
  18. CEFAZOLIN SODIUM. [Concomitant]
     Active Substance: CEFAZOLIN SODIUM
     Dosage: 1 GRAM, ONCE A DAY
     Route: 042
     Dates: start: 20200125, end: 20200126
  19. FUNGUARD [Concomitant]
     Active Substance: MICAFUNGIN SODIUM
     Indication: INFECTION PROPHYLAXIS
     Dosage: 150 MILLIGRAM, ONCE A DAY
     Route: 042
     Dates: start: 20200128, end: 20200204
  20. MAGMITT [Concomitant]
     Active Substance: MAGNESIUM OXIDE
     Indication: CONSTIPATION
     Dosage: 990 MILLIGRAM, ONCE A DAY
     Route: 048
     Dates: start: 20200203
  21. LEUCOVORIN. [Suspect]
     Active Substance: LEUCOVORIN
     Dosage: 9 DOSAGE FORM
     Route: 048
     Dates: start: 20200109, end: 20200109
  22. BAKTAR [Concomitant]
     Active Substance: SULFAMETHOXAZOLE\TRIMETHOPRIM
     Indication: INFECTION PROPHYLAXIS
     Dosage: 480 MILLIGRAM, ONCE A DAY
     Route: 048
  23. BONALON [Concomitant]
     Active Substance: ALENDRONATE SODIUM
     Indication: OSTEOPOROSIS
     Dosage: 35 MILLIGRAM, EVERY WEEK
     Route: 048
     Dates: end: 20200111
  24. POVIDONE-IODINE. [Concomitant]
     Active Substance: POVIDONE-IODINE
     Indication: PROPHYLAXIS
     Dosage: UNK, AS NEEDED
     Route: 065
  25. FAMOTIDINE. [Concomitant]
     Active Substance: FAMOTIDINE
     Indication: GASTRITIS PROPHYLAXIS
     Dosage: 20 MILLIGRAM, ONCE A DAY
     Route: 042
     Dates: start: 20200114, end: 20200114
  26. VALIXA [Concomitant]
     Active Substance: VALGANCICLOVIR
     Indication: CYTOMEGALOVIRUS INFECTION
     Dosage: 1800 MILLIGRAM, ONCE A DAY
     Route: 048
     Dates: start: 20200117, end: 20200124
  27. ALOXI [Concomitant]
     Active Substance: PALONOSETRON HYDROCHLORIDE
     Indication: PROPHYLAXIS OF NAUSEA AND VOMITING
     Dosage: 0.75 MILLIGRAM, EVERY WEEK
     Route: 042
     Dates: start: 20200115, end: 20200122
  28. FOLOTYN [Suspect]
     Active Substance: PRALATREXATE
     Indication: PERIPHERAL T-CELL LYMPHOMA UNSPECIFIED
     Dosage: 30 MILLIEQUIVALENT PER SQUARE METRE, DAILY
     Route: 042
     Dates: start: 20191223, end: 20191223
  29. LEUCOVORIN. [Suspect]
     Active Substance: LEUCOVORIN
     Dosage: 6 DOSAGE FORM
     Route: 048
     Dates: start: 20200108, end: 20200108
  30. LEUCOVORIN. [Suspect]
     Active Substance: LEUCOVORIN
     Dosage: 3 DOSAGE FORM
     Route: 048
     Dates: start: 20200110, end: 20200110
  31. FOLIAMIN [Concomitant]
     Active Substance: FOLIC ACID
     Indication: PROPHYLAXIS
     Dosage: 1.25 MILLIGRAM, ONCE A DAY
     Route: 048
     Dates: start: 20191217, end: 20200206
  32. AMLODIPINE [Concomitant]
     Active Substance: AMLODIPINE BESYLATE
     Indication: HYPERTENSION
     Dosage: 2.5 MILLIGRAM, ONCE A DAY
     Route: 048
  33. CODEINE PHOSPHATE [Concomitant]
     Active Substance: CODEINE PHOSPHATE
     Indication: COUGH
     Dosage: 2 GRAM, AS NEEDED
     Route: 048
  34. ISEPAMICIN SULFATE. [Concomitant]
     Active Substance: ISEPAMICIN SULFATE
     Indication: INFECTION PROPHYLAXIS
     Dosage: 400 MILLIGRAM, ONCE A DAY
     Route: 042
     Dates: start: 20200101, end: 20200101
  35. ISEPAMICIN SULFATE. [Concomitant]
     Active Substance: ISEPAMICIN SULFATE
     Dosage: 400 MILLIGRAM, ONCE A DAY
     Route: 042
     Dates: start: 20200125, end: 20200126
  36. ISEPAMICIN SULFATE. [Concomitant]
     Active Substance: ISEPAMICIN SULFATE
     Dosage: 200 MILLIGRAM, ONCE A DAY
     Route: 042
     Dates: start: 20200127, end: 20200127
  37. BONOTEO [Concomitant]
     Active Substance: MINODRONIC ACID
     Indication: OSTEOPOROSIS
     Dosage: 50 MILLIGRAM, EVERY MONTH
     Route: 048
     Dates: start: 20200119
  38. LEUCOVORIN. [Suspect]
     Active Substance: LEUCOVORIN
     Dosage: 15 DOSAGE FORM
     Route: 048
     Dates: start: 20191225, end: 20191225
  39. AZULENE [Concomitant]
     Active Substance: AZULENE
     Indication: PROPHYLAXIS
     Dosage: UNK, AS NEEDED
     Route: 065
  40. CEFAZOLIN SODIUM. [Concomitant]
     Active Substance: CEFAZOLIN SODIUM
     Dosage: 2 GRAM, ONCE A DAY
     Route: 042
     Dates: start: 20200124, end: 20200124
  41. CEFAZOLIN SODIUM. [Concomitant]
     Active Substance: CEFAZOLIN SODIUM
     Dosage: 4 GRAM, ONCE A DAY
     Route: 042
     Dates: start: 20200125, end: 20200127
  42. ISEPAMICIN SULFATE. [Concomitant]
     Active Substance: ISEPAMICIN SULFATE
     Dosage: 400 MILLIGRAM, ONCE A DAY
     Route: 042
     Dates: start: 20200124, end: 20200124
  43. MINOCYCLINE HYDROCHLORIDE. [Concomitant]
     Active Substance: MINOCYCLINE HYDROCHLORIDE
     Indication: INFECTION PROPHYLAXIS
     Dosage: 100 MILLIGRAM, ONCE A DAY
     Route: 042
     Dates: start: 20200101, end: 20200101
  44. VANCOMYCIN HYDROCHLORIDE. [Concomitant]
     Active Substance: VANCOMYCIN HYDROCHLORIDE
     Indication: INFECTION PROPHYLAXIS
     Dosage: 1 GRAM, ONCE A DAY
     Route: 042
     Dates: start: 20200129, end: 20200129
  45. ALLOPURINOL. [Suspect]
     Active Substance: ALLOPURINOL
     Indication: HYPERURICAEMIA
     Dosage: 100 MILLIGRAM, ONCE A DAY
     Route: 048
     Dates: start: 20191223, end: 20191225
  46. FEBURIC [Concomitant]
     Active Substance: FEBUXOSTAT
     Indication: HYPERURICAEMIA
     Dosage: 60 MILLIGRAM, ONCE A DAY
     Route: 048
     Dates: start: 20200115, end: 20200121
  47. VANCOMYCIN HYDROCHLORIDE. [Concomitant]
     Active Substance: VANCOMYCIN HYDROCHLORIDE
     Dosage: 1.5 GRAM, ONCE A DAY
     Route: 042
     Dates: start: 20200130, end: 20200204

REACTIONS (11)
  - Anaemia [Not Recovered/Not Resolved]
  - Thrombocytopenia [Not Recovered/Not Resolved]
  - Tumour associated fever [Not Recovered/Not Resolved]
  - Neutropenia [Not Recovered/Not Resolved]
  - Malignant neoplasm progression [Unknown]
  - C-reactive protein increased [Not Recovered/Not Resolved]
  - Eosinophilia [Recovered/Resolved]
  - Lymphopenia [Not Recovered/Not Resolved]
  - Rash [Recovered/Resolved]
  - Blood lactate dehydrogenase increased [Recovered/Resolved]
  - Stomatitis [Not Recovered/Not Resolved]

NARRATIVE: CASE EVENT DATE: 20191220
